FAERS Safety Report 17011714 (Version 2)
Quarter: 2019Q4

REPORT INFORMATION
  Report Type: Spontaneous
  Country: CN (occurrence: CN)
  Receive Date: 20191108
  Receipt Date: 20191113
  Transmission Date: 20200122
  Serious: Yes (Other)
  Sender: FDA-Public Use
  Company Number: CN-ELI_LILLY_AND_COMPANY-CN201911001097

PATIENT
  Sex: Male

DRUGS (1)
  1. ERBITUX [Suspect]
     Active Substance: CETUXIMAB
     Indication: RECTOSIGMOID CANCER METASTATIC
     Dosage: 600 MG, UNKNOWN
     Route: 042
     Dates: start: 20191024, end: 20191024

REACTIONS (5)
  - Heart rate increased [Recovered/Resolved]
  - Hypoxia [Recovered/Resolved]
  - Swelling of eyelid [Recovered/Resolved]
  - Erythema [Recovered/Resolved]
  - Hyperhidrosis [Recovered/Resolved]

NARRATIVE: CASE EVENT DATE: 20191024
